FAERS Safety Report 9935071 (Version 2)
Quarter: 2020Q3

REPORT INFORMATION
  Report Type: Spontaneous
  Country: BR (occurrence: BR)
  Receive Date: 20140228
  Receipt Date: 20200717
  Transmission Date: 20201103
  Serious: No
  Sender: FDA-Public Use
  Company Number: BR-PFIZER INC-2014055280

PATIENT
  Age: 76 Year
  Sex: Female
  Weight: 55 kg

DRUGS (3)
  1. ATACAND [Concomitant]
     Active Substance: CANDESARTAN CILEXETIL
     Indication: BLOOD PRESSURE MEASUREMENT
     Dosage: UNSPECIFIED DOSE, 1X/DAY
  2. CEWIN [Concomitant]
     Active Substance: ASCORBIC ACID
  3. XALATAN [Suspect]
     Active Substance: LATANOPROST
     Indication: GLAUCOMA
     Dosage: 1 DF, UNK
     Dates: start: 20040418

REACTIONS (1)
  - No adverse event [Recovered/Resolved]
